FAERS Safety Report 23651668 (Version 1)
Quarter: 2024Q1

REPORT INFORMATION
  Report Type: Spontaneous
  Country: FR (occurrence: None)
  Receive Date: 20240320
  Receipt Date: 20240320
  Transmission Date: 20240410
  Serious: Yes (Hospitalization)
  Sender: FDA-Public Use
  Company Number: 2024A057237

PATIENT
  Age: 30166 Day
  Sex: Male
  Weight: 74 kg

DRUGS (1)
  1. DAPAGLIFLOZIN [Suspect]
     Active Substance: DAPAGLIFLOZIN
     Indication: Diabetes mellitus
     Dosage: 10.0MG ONCE/SINGLE ADMINISTRATION
     Route: 048
     Dates: start: 20221117, end: 202212

REACTIONS (2)
  - Urinary retention [Unknown]
  - Urinary tract infection [Unknown]

NARRATIVE: CASE EVENT DATE: 20221230
